FAERS Safety Report 9209469 (Version 1)
Quarter: 2013Q2

REPORT INFORMATION
  Report Type: Spontaneous
  Country: US (occurrence: None)
  Receive Date: 20130403
  Receipt Date: 20130403
  Transmission Date: 20140414
  Serious: No
  Sender: FDA-Public Use
  Company Number: None

PATIENT
  Age: 59 Year
  Sex: Male
  Weight: 181.44 kg

DRUGS (1)
  1. NUEDEXTA [Suspect]
     Indication: TOURETTE^S DISORDER
     Dosage: 1 CAP EVERY 8HRS   8 HOURS  MOUTH
     Route: 048
     Dates: start: 20130227, end: 20130318

REACTIONS (7)
  - Abdominal pain upper [None]
  - Flatulence [None]
  - Dyspepsia [None]
  - Dizziness [None]
  - Nausea [None]
  - Balance disorder [None]
  - Unevaluable event [None]
